FAERS Safety Report 13701398 (Version 1)
Quarter: 2017Q2

REPORT INFORMATION
  Report Type: Spontaneous
  Country: US (occurrence: US)
  Receive Date: 20170629
  Receipt Date: 20170629
  Transmission Date: 20170830
  Serious: Yes (Death, Hospitalization)
  Sender: FDA-Public Use
  Company Number: US-SCIEGEN PHARMACEUTICALS INC-2017SCILIT00440

PATIENT
  Age: 48 Year
  Sex: Female

DRUGS (6)
  1. MELOXICAM. [Concomitant]
     Active Substance: MELOXICAM
     Indication: PRODUCT USED FOR UNKNOWN INDICATION
     Dosage: UNK
     Route: 065
  2. CEFALEXIN [Suspect]
     Active Substance: CEPHALEXIN
     Indication: LOCALISED INFECTION
     Dosage: UNK
     Route: 065
     Dates: start: 20060522
  3. MOXIFLOXACIN. [Suspect]
     Active Substance: MOXIFLOXACIN
     Indication: LOCALISED INFECTION
     Dosage: UNK
     Route: 065
  4. ESCITALOPRAM [Concomitant]
     Active Substance: ESCITALOPRAM OXALATE
     Indication: PRODUCT USED FOR UNKNOWN INDICATION
     Dosage: UNK
     Route: 065
  5. ARIPIPRAZOLE. [Concomitant]
     Active Substance: ARIPIPRAZOLE
     Indication: PRODUCT USED FOR UNKNOWN INDICATION
     Dosage: UNK
     Route: 065
     Dates: end: 20060615
  6. LAMOTRIGINE TABLETS [Suspect]
     Active Substance: LAMOTRIGINE
     Indication: PRODUCT USED FOR UNKNOWN INDICATION
     Dosage: 25 MG, BID
     Route: 065
     Dates: start: 20060508, end: 20060615

REACTIONS (2)
  - Drug reaction with eosinophilia and systemic symptoms [Unknown]
  - Liver injury [Fatal]
